FAERS Safety Report 8026498-8 (Version None)
Quarter: 2012Q1

REPORT INFORMATION
  Report Type: 
  Country: None (occurrence: None)
  Receive Date: 20120105
  Receipt Date: 20111226
  Transmission Date: 20120608
  Serious: Yes (Hospitalization)
  Sender: FDA-Public Use
  Company Number: JP-MYLANLABS-2012S1000153

PATIENT

DRUGS (2)
  1. OXALIPLATIN [Suspect]
  2. IRINOTECAN HCL [Suspect]
     Indication: LARGE INTESTINE CARCINOMA

REACTIONS (1)
  - HYPOAESTHESIA [None]
